FAERS Safety Report 11004189 (Version 1)
Quarter: 2015Q2

REPORT INFORMATION
  Report Type: Spontaneous
  Country: GB (occurrence: None)
  Receive Date: 20150407
  Receipt Date: 20150407
  Transmission Date: 20150821
  Serious: Yes (Other)
  Sender: FDA-Public Use
  Company Number: 20150943

PATIENT
  Sex: Female

DRUGS (1)
  1. METOJECT (METHOTREXATE SODIUM) [Suspect]
     Active Substance: METHOTREXATE SODIUM

REACTIONS (2)
  - Hip surgery [None]
  - Therapy cessation [None]
